FAERS Safety Report 15894533 (Version 1)
Quarter: 2019Q1

REPORT INFORMATION
  Report Type: Spontaneous
  Country: US (occurrence: US)
  Receive Date: 20190109
  Receipt Date: 20190109
  Transmission Date: 20190417
  Serious: Yes (Death)
  Sender: FDA-Public Use
  Company Number: None

PATIENT
  Sex: Female

DRUGS (1)
  1. COSENTYX [Suspect]
     Active Substance: SECUKINUMAB
     Indication: PSORIASIS
     Dosage: ?          OTHER FREQUENCY:QWK FOR 5 WEEKS;?
     Route: 058
     Dates: start: 20181127, end: 20181220

REACTIONS (1)
  - Death [None]

NARRATIVE: CASE EVENT DATE: 20190107
